FAERS Safety Report 23173781 (Version 1)
Quarter: 2023Q4

REPORT INFORMATION
  Report Type: Spontaneous
  Country: DE (occurrence: DE)
  Receive Date: 20231111
  Receipt Date: 20231111
  Transmission Date: 20240110
  Serious: Yes (Hospitalization, Other)
  Sender: FDA-Public Use
  Company Number: DE-STRIDES ARCOLAB LIMITED-2023SP016849

PATIENT
  Age: 26 Year
  Sex: Male

DRUGS (12)
  1. PREDNISOLONE [Suspect]
     Active Substance: PREDNISOLONE
     Indication: Insulin resistance
     Dosage: UNK
     Route: 065
  2. PREDNISOLONE [Suspect]
     Active Substance: PREDNISOLONE
     Dosage: UNK (TAPPERED)
     Route: 065
  3. HUMAN IMMUNOGLOBULIN G [Suspect]
     Active Substance: HUMAN IMMUNOGLOBULIN G
     Indication: Insulin resistance
     Dosage: UNK
     Route: 042
  4. METHYLPREDNISOLONE [Suspect]
     Active Substance: METHYLPREDNISOLONE
     Indication: Insulin resistance
     Dosage: UNK
     Route: 042
  5. METHYLPREDNISOLONE [Suspect]
     Active Substance: METHYLPREDNISOLONE
     Dosage: UNK (TAPPERED)
     Route: 065
  6. METHYLPREDNISOLONE [Suspect]
     Active Substance: METHYLPREDNISOLONE
     Dosage: UNK
     Route: 065
  7. RITUXIMAB [Suspect]
     Active Substance: RITUXIMAB
     Indication: Insulin resistance
     Dosage: UNK, CYCLICAL, ONE CYCLE (TWO DOSES)
     Route: 065
  8. RITUXIMAB [Suspect]
     Active Substance: RITUXIMAB
     Dosage: UNK (TAPPERED)
     Route: 065
  9. INSULIN NOS [Concomitant]
     Active Substance: INSULIN NOS
     Indication: Type 2 diabetes mellitus
     Dosage: 53000 UNITS PER DAY (MAXIMUM DOSAGE)
     Route: 042
  10. INSULIN NOS [Concomitant]
     Active Substance: INSULIN NOS
     Dosage: 278 INTERNATIONAL UNIT PER DAY
     Route: 042
  11. INSULIN NOS [Concomitant]
     Active Substance: INSULIN NOS
     Dosage: 3157 INTERNATIONAL UNIT PER DAY
     Route: 042
  12. INSULIN NOS [Concomitant]
     Active Substance: INSULIN NOS
     Dosage: 3337 INTERNATIONAL UNIT PER DAY
     Route: 042

REACTIONS (7)
  - Right ventricular failure [Unknown]
  - Disseminated intravascular coagulation [Unknown]
  - Acute respiratory distress syndrome [Unknown]
  - Renal impairment [Unknown]
  - Opportunistic infection [Unknown]
  - Septic shock [Unknown]
  - Treatment failure [Unknown]
